FAERS Safety Report 4837366-4 (Version None)
Quarter: 2005Q4

REPORT INFORMATION
  Report Type: 
  Country: None (occurrence: None)
  Receive Date: 20051122
  Receipt Date: 20051109
  Transmission Date: 20060501
  Serious: Yes (Other)
  Sender: FDA-Public Use
  Company Number: 2005151393

PATIENT

DRUGS (5)
  1. SOLU-MEDROL [Suspect]
     Indication: DYSPNOEA
     Dosage: INTRAVENOUS
     Route: 042
  2. VITAMINS W/AMINO ACIDS (AMINO ACIDS NOS, VITAMINS NOS) [Concomitant]
  3. ELECTROLYTES WITH CARBOHYDRATES (ELECTROLYTES WITH CARBOHYDRATES) [Concomitant]
  4. CODEINE PHOSPHATE (CODEINE PHOSPHATE) [Concomitant]
  5. SULPERAZON (CEFOPERAZONE, SULBACTAM) [Concomitant]

REACTIONS (1)
  - COMA [None]
